FAERS Safety Report 8534620-X (Version None)
Quarter: 2012Q3

REPORT INFORMATION
  Report Type: 
  Country: None (occurrence: None)
  Receive Date: 20120724
  Receipt Date: 20120717
  Transmission Date: 20120928
  Serious: Yes (Other)
  Sender: FDA-Public Use
  Company Number: JP-EISAI INC-E2090-02221-SPO-JP

PATIENT
  Age: 63 Year
  Sex: Female

DRUGS (2)
  1. ZONISAMIDE [Suspect]
     Indication: PROPHYLAXIS
  2. ZONISAMIDE [Suspect]
     Indication: CONVULSION
     Route: 048

REACTIONS (1)
  - DERMATITIS EXFOLIATIVE [None]
